FAERS Safety Report 4553686-5 (Version None)
Quarter: 2004Q4

REPORT INFORMATION
  Report Type: 
  Country: None (occurrence: None)
  Receive Date: 20041227
  Receipt Date: 20040917
  Transmission Date: 20050328
  Serious: Yes (Hospitalization, Other)
  Sender: FDA-Public Use
  Company Number: US-JNJFOC-20040705621

PATIENT
  Age: 46 Year
  Sex: Male
  Weight: 63.5036 kg

DRUGS (11)
  1. REOPRO [Suspect]
     Indication: CORONARY ANGIOPLASTY
     Dosage: SEE IMAGE
     Route: 042
     Dates: start: 20040506
  2. REOPRO [Suspect]
     Indication: CORONARY ANGIOPLASTY
     Dosage: SEE IMAGE
     Route: 042
     Dates: start: 20040506
  3. ASPIRIN [Concomitant]
  4. HEPARIN [Concomitant]
  5. PLAVIX [Concomitant]
  6. FENTANYL [Concomitant]
  7. VERSED [Concomitant]
  8. MAGNESIUM (MAGNESIUM) [Concomitant]
  9. NITROGLYCERIN [Concomitant]
  10. MORPHINE SULFATE [Concomitant]
  11. METOPROLOL TARTRATE [Concomitant]

REACTIONS (1)
  - THROMBOCYTOPENIA [None]
